FAERS Safety Report 13439858 (Version 1)
Quarter: 2017Q2

REPORT INFORMATION
  Report Type: Spontaneous
  Country: AU (occurrence: AU)
  Receive Date: 20170413
  Receipt Date: 20170413
  Transmission Date: 20170830
  Serious: Yes (Life-Threatening)
  Sender: FDA-Public Use
  Company Number: AU-MYLANLABS-2017M1022631

PATIENT

DRUGS (1)
  1. ASMOL INHALER [Suspect]
     Active Substance: ALBUTEROL SULFATE
     Indication: ASTHMA
     Dosage: UNK
     Route: 055
     Dates: start: 20170409

REACTIONS (2)
  - Drug ineffective [Recovered/Resolved]
  - Device malfunction [None]

NARRATIVE: CASE EVENT DATE: 20170409
